FAERS Safety Report 13967989 (Version 1)
Quarter: 2017Q3

REPORT INFORMATION
  Report Type: Spontaneous
  Country: US (occurrence: US)
  Receive Date: 20170914
  Receipt Date: 20170914
  Transmission Date: 20171128
  Serious: Yes (Other)
  Sender: FDA-Public Use
  Company Number: US-BAYER-2017-171759

PATIENT
  Sex: Female

DRUGS (7)
  1. ALEVE [Suspect]
     Active Substance: NAPROXEN SODIUM
     Dosage: UNK
  2. VOLTAREN [Concomitant]
     Active Substance: DICLOFENAC SODIUM
     Dosage: UNK
  3. DULOXETINE. [Concomitant]
     Active Substance: DULOXETINE
     Dosage: UNK
  4. TRICOR [Concomitant]
     Active Substance: FENOFIBRATE
     Dosage: UNK
  5. LYRICA [Concomitant]
     Active Substance: PREGABALIN
  6. OXYCODONE [Concomitant]
     Active Substance: OXYCODONE
     Dosage: UNK
  7. BAYER ASPIRIN [Suspect]
     Active Substance: ASPIRIN
     Dosage: UNK

REACTIONS (2)
  - Drug hypersensitivity [Unknown]
  - Peptic ulcer [Unknown]
